FAERS Safety Report 8326755-1 (Version None)
Quarter: 2012Q2

REPORT INFORMATION
  Report Type: 
  Country: None (occurrence: None)
  Receive Date: 20120501
  Receipt Date: 20120423
  Transmission Date: 20120825
  Serious: Yes (Other)
  Sender: FDA-Public Use
  Company Number: JP-JHP PHARMACEUTICALS, LLC-JHP201200231

PATIENT
  Age: 79 Year
  Sex: Male

DRUGS (13)
  1. SEVOFLURANE [Concomitant]
     Indication: GENERAL ANAESTHESIA
     Route: 055
  2. ROCURONIUM BROMIDE [Concomitant]
     Indication: GENERAL ANAESTHESIA
  3. DOBUTAMINE HCL [Suspect]
  4. NOREPINEPHRINE BITARTRATE [Suspect]
  5. DOBUTAMINE HCL [Concomitant]
     Route: 042
  6. EPHEDRINE [Suspect]
  7. PHENYLEPHRINE HCL [Suspect]
  8. ATROPINE [Suspect]
  9. NOREPINEPHRINE BITARTRATE [Concomitant]
     Route: 042
  10. PITRESSIN [Suspect]
     Indication: HYPOTENSION
  11. EPINEPHRINE [Suspect]
     Indication: HYPOTENSION
  12. DOPAMINE HCL [Suspect]
  13. DOPAMINE HCL [Concomitant]
     Route: 042

REACTIONS (2)
  - DRUG INEFFECTIVE FOR UNAPPROVED INDICATION [None]
  - DRUG INEFFECTIVE [None]
